FAERS Safety Report 9766578 (Version 1)
Quarter: 2013Q4

REPORT INFORMATION
  Report Type: Spontaneous
  Country: US (occurrence: US)
  Receive Date: 20131217
  Receipt Date: 20131217
  Transmission Date: 20140711
  Serious: No
  Sender: FDA-Public Use
  Company Number: US-BIOGENIDEC-2013BI119063

PATIENT
  Sex: Female

DRUGS (4)
  1. GABAPENTIN [Concomitant]
  2. KEPPRA [Concomitant]
  3. TOPIRAMATE [Concomitant]
  4. TECFIDERA [Suspect]
     Indication: MULTIPLE SCLEROSIS
     Route: 048
     Dates: start: 20130525

REACTIONS (1)
  - Influenza [Unknown]
